FAERS Safety Report 4673586-X (Version None)
Quarter: 2005Q2

REPORT INFORMATION
  Report Type: 
  Country: None (occurrence: None)
  Receive Date: 20050525
  Receipt Date: 20050415
  Transmission Date: 20051028
  Serious: Yes (Other)
  Sender: FDA-Public Use
  Company Number: PHBS2005JP05475

PATIENT
  Age: 89 Year
  Sex: Male
  Weight: 51 kg

DRUGS (6)
  1. AMLODIN [Concomitant]
     Indication: HYPERTENSION
     Dosage: 7.5 MG, UNK
     Route: 048
     Dates: start: 20050414
  2. DIOVAN [Suspect]
     Indication: HYPERTENSION
     Dosage: 80 MG, QD
     Route: 048
     Dates: start: 20030520, end: 20050414
  3. INSULIN HUMAN [Suspect]
     Indication: DIABETES MELLITUS
     Dosage: 10 IU, QD
     Route: 058
     Dates: start: 20041002
  4. INSULIN HUMAN [Suspect]
     Dosage: 12 IU, QD
     Route: 058
     Dates: start: 20040601, end: 20041001
  5. FLUITRAN [Concomitant]
     Indication: HYPERTENSION
     Dosage: 1 MG, QD
     Route: 048
     Dates: start: 20041112
  6. NORVASC [Concomitant]
     Indication: HYPERTENSION
     Dosage: 2.5 MG, QD
     Route: 048
     Dates: start: 20031017, end: 20050413

REACTIONS (3)
  - COLD SWEAT [None]
  - HYPOGLYCAEMIA [None]
  - MALAISE [None]
